FAERS Safety Report 6183720-0 (Version None)
Quarter: 2009Q2

REPORT INFORMATION
  Report Type: 
  Country: None (occurrence: None)
  Receive Date: 20090506
  Receipt Date: 20090506
  Transmission Date: 20091009
  Serious: No
  Sender: FDA-Public Use
  Company Number: None

PATIENT
  Sex: Female
  Weight: 61.2356 kg

DRUGS (1)
  1. LAMOTRIGINE [Suspect]
     Indication: BIPOLAR I DISORDER
     Dosage: 200 MG ONCE PER DAY OTHER
     Route: 050
     Dates: start: 20090416, end: 20090504

REACTIONS (2)
  - DRUG INEFFECTIVE [None]
  - VERTIGO [None]
